APPROVED DRUG PRODUCT: ZAXOPAM
Active Ingredient: OXAZEPAM
Strength: 10MG
Dosage Form/Route: CAPSULE;ORAL
Application: A070650 | Product #001
Applicant: QUANTUM PHARMICS LTD
Approved: Mar 1, 1988 | RLD: No | RS: No | Type: DISCN